FAERS Safety Report 13403215 (Version 1)
Quarter: 2017Q2

REPORT INFORMATION
  Report Type: Spontaneous
  Country: US (occurrence: US)
  Receive Date: 20170404
  Receipt Date: 20170404
  Transmission Date: 20170830
  Serious: No
  Sender: FDA-Public Use
  Company Number: None

PATIENT
  Age: 65 Year
  Sex: Male

DRUGS (1)
  1. LIDOCAINE PATCH [Suspect]
     Active Substance: LIDOCAINE
     Indication: PAIN
     Route: 061
     Dates: start: 20170330, end: 20170404

REACTIONS (4)
  - Device difficult to use [None]
  - Discomfort [None]
  - Pain [None]
  - Product physical issue [None]

NARRATIVE: CASE EVENT DATE: 20170404
